FAERS Safety Report 5466973-3 (Version None)
Quarter: 2007Q3

REPORT INFORMATION
  Report Type: 
  Country: None (occurrence: None)
  Receive Date: 20070921
  Receipt Date: 20070921
  Transmission Date: 20080115
  Serious: Yes (Other)
  Sender: FDA-Public Use
  Company Number: None

PATIENT
  Age: 62 Year
  Sex: Female
  Weight: 73.9363 kg

DRUGS (2)
  1. METRONIDASOLE 500MG RED CEDAR MEDICAL CENTER PHARMACY [Suspect]
     Indication: DIVERTICULITIS
     Dosage: 1 3 TIMES/DAY PO
     Route: 048
     Dates: start: 20070801, end: 20070806
  2. CIPROFLOXACIN 500 MG RED CEDAR MEDICAL CENTER PHARMACY [Suspect]
     Indication: DIVERTICULITIS
     Dosage: 1 2 TIMES/DAY PO
     Route: 048
     Dates: start: 20070801, end: 20070806

REACTIONS (6)
  - ASTHENIA [None]
  - DIZZINESS [None]
  - FATIGUE [None]
  - FEELING ABNORMAL [None]
  - MALAISE [None]
  - STOMACH DISCOMFORT [None]
